FAERS Safety Report 5661523-0 (Version None)
Quarter: 2008Q1

REPORT INFORMATION
  Report Type: 
  Country: None (occurrence: None)
  Receive Date: 20080312
  Receipt Date: 20080305
  Transmission Date: 20080703
  Serious: Yes (Other)
  Sender: FDA-Public Use
  Company Number: PHBS2008NL03027

PATIENT

DRUGS (2)
  1. EXELON [Suspect]
     Dosage: 3 MG, BID
     Dates: start: 20070601
  2. LEVODOPA [Concomitant]

REACTIONS (1)
  - ARRHYTHMIA [None]
